FAERS Safety Report 11333234 (Version 1)
Quarter: 2015Q3

REPORT INFORMATION
  Report Type: Spontaneous
  Country: US (occurrence: US)
  Receive Date: 20150803
  Receipt Date: 20150803
  Transmission Date: 20151125
  Serious: Yes (Other)
  Sender: FDA-Public Use
  Company Number: US-ELI_LILLY_AND_COMPANY-US200711004464

PATIENT
  Age: 48 Year
  Sex: Female
  Weight: 190.48 kg

DRUGS (11)
  1. ZYPREXA [Suspect]
     Active Substance: OLANZAPINE
     Dates: start: 2000, end: 2002
  2. LITHIUM. [Concomitant]
     Active Substance: LITHIUM
     Dates: start: 200504, end: 2007
  3. RISPERDAL [Concomitant]
     Active Substance: RISPERIDONE
     Indication: DEPRESSION
     Dosage: 3 MG, DAILY (1/D)
     Route: 048
     Dates: start: 2002, end: 20060915
  4. EFFEXOR XR [Concomitant]
     Active Substance: VENLAFAXINE HYDROCHLORIDE
     Dates: start: 2001, end: 2007
  5. PRILOSEC [Concomitant]
     Active Substance: OMEPRAZOLE MAGNESIUM
     Dates: start: 1997, end: 2007
  6. MIRAPEX [Concomitant]
     Active Substance: PRAMIPEXOLE DIHYDROCHLORIDE
     Indication: RESTLESS LEGS SYNDROME
     Dates: start: 2003, end: 2007
  7. COUMADIN [Concomitant]
     Active Substance: WARFARIN SODIUM
     Dates: start: 2004, end: 2007
  8. POTASSIUM CHLORIDE. [Concomitant]
     Active Substance: POTASSIUM CHLORIDE
     Dates: start: 2005, end: 2007
  9. PROVIGIL [Concomitant]
     Active Substance: MODAFINIL
     Indication: FATIGUE
     Dosage: UNK, DAILY (1/D)
     Route: 048
     Dates: start: 200608, end: 20060915
  10. TRIAMTERENE. [Concomitant]
     Active Substance: TRIAMTERENE
     Dates: start: 2006, end: 2007
  11. ENABLEX                            /01760402/ [Concomitant]
     Dates: start: 2006, end: 2007

REACTIONS (1)
  - Tardive dyskinesia [Recovering/Resolving]

NARRATIVE: CASE EVENT DATE: 200609
